FAERS Safety Report 5124521-1 (Version None)
Quarter: 2006Q3

REPORT INFORMATION
  Report Type: 
  Country: None (occurrence: None)
  Receive Date: 20060821
  Receipt Date: 20060523
  Transmission Date: 20061208
  Serious: No
  Sender: FDA-Public Use
  Company Number: TPA2006A00928

PATIENT

DRUGS (2)
  1. ROZEREM [Suspect]
     Dosage: PER ORAL
     Route: 048
  2. MORPHINE [Suspect]
     Dosage: INTRAVENOUS
     Route: 042

REACTIONS (1)
  - UNEVALUABLE EVENT [None]
